FAERS Safety Report 18962708 (Version 1)
Quarter: 2021Q1

REPORT INFORMATION
  Report Type: Spontaneous
  Country: US (occurrence: US)
  Receive Date: 20210303
  Receipt Date: 20210303
  Transmission Date: 20210420
  Serious: Yes (Hospitalization)
  Sender: FDA-Public Use
  Company Number: None

PATIENT
  Age: 82 Year
  Sex: Male
  Weight: 86.2 kg

DRUGS (9)
  1. ENOXAPARIN 40MG DAILY [Concomitant]
  2. FAMOTIDINE 20MG DAILY [Concomitant]
  3. HUMALOG 1?6 UNITS QID SLIDING SCALE [Concomitant]
  4. DONEPEZIL 5MG DAILY [Concomitant]
  5. BAMLANIVIMAB. [Suspect]
     Active Substance: BAMLANIVIMAB
     Indication: COVID-19
     Dosage: ?          OTHER FREQUENCY:ONCE;?
     Route: 040
     Dates: start: 20210302, end: 20210302
  6. ATORVASTATIN 10MG DAILY [Concomitant]
     Active Substance: ATORVASTATIN
  7. DULOXETINE 30MG DAILY [Concomitant]
  8. ALBUTEROL INHALER [Concomitant]
     Active Substance: ALBUTEROL
  9. ACETAMINOPHEN 650MG Q6H PRN [Concomitant]

REACTIONS (3)
  - Syncope [None]
  - Seizure [None]
  - Unresponsive to stimuli [None]

NARRATIVE: CASE EVENT DATE: 20210303
